FAERS Safety Report 8298372-3 (Version None)
Quarter: 2012Q2

REPORT INFORMATION
  Report Type: 
  Country: None (occurrence: None)
  Receive Date: 20120419
  Receipt Date: 20120403
  Transmission Date: 20120825
  Serious: Yes (Hospitalization)
  Sender: FDA-Public Use
  Company Number: US-BAYER-2012-006893

PATIENT
  Age: 30 Year
  Sex: Female
  Weight: 113.38 kg

DRUGS (10)
  1. AMLODIPINE [Concomitant]
     Dosage: 5 MG, UNK
     Route: 048
  2. ACETAMINOPHEN [Concomitant]
     Dosage: 500 MG, UNK
  3. HYDROCODONE BITARTRATE AND ACETAMINOPHEN [Concomitant]
     Dosage: 10 MG, UNK
  4. HYDROCODONE BITARTRATE AND ACETAMINOPHEN [Concomitant]
     Dosage: 5 MG, 1-2 TABLETS EVERY 4 HOURS AS NEEDED
  5. PROMETHAZINE [Concomitant]
     Dosage: 25 UNK, UNK
  6. ASPIRIN [Concomitant]
     Dosage: 81 MG, UNK
  7. FISH OIL [Concomitant]
     Dosage: 1200 UNK, UNK
  8. CENTRUM [Concomitant]
  9. YAZ [Suspect]
     Indication: ACNE
     Dosage: UNK
     Dates: start: 20070901, end: 20100801
  10. HYDROCODONE BITARTRATE AND ACETAMINOPHEN [Concomitant]
     Dosage: 325 MG, 1-2 TABLETS EVERY 4 HOURS AS NEEDED

REACTIONS (6)
  - PAIN [None]
  - DEEP VEIN THROMBOSIS [None]
  - PULMONARY EMBOLISM [None]
  - EMOTIONAL DISTRESS [None]
  - GENERAL PHYSICAL HEALTH DETERIORATION [None]
  - ANXIETY [None]
